FAERS Safety Report 8962794 (Version 1)
Quarter: 2012Q4

REPORT INFORMATION
  Report Type: 
  Country: PT (occurrence: PT)
  Receive Date: 20121214
  Receipt Date: 20121214
  Transmission Date: 20130627
  Serious: Yes (Other)
  Sender: FDA-Public Use
  Company Number: PT-JNJFOC-20121202260

PATIENT
  Sex: Female

DRUGS (3)
  1. PREZISTA [Suspect]
     Indication: HIV INFECTION
     Route: 065
     Dates: start: 2011
  2. INTELENCE [Suspect]
     Indication: HIV INFECTION
     Route: 065
     Dates: start: 2011
  3. RALTEGRAVIR [Concomitant]
     Indication: HIV INFECTION
     Route: 065
     Dates: start: 2011

REACTIONS (2)
  - Bone disorder [Unknown]
  - Weight increased [Unknown]
